FAERS Safety Report 5211401-6 (Version None)
Quarter: 2006Q4

REPORT INFORMATION
  Report Type: 
  Country: None (occurrence: None)
  Receive Date: 20061130
  Receipt Date: 20060817
  Transmission Date: 20070319
  Serious: Yes (Disabling, Other)
  Sender: FDA-Public Use
  Company Number: WAES 0608USA04379

PATIENT
  Age: 46 Year
  Sex: Female

DRUGS (9)
  1. TAB FOSAMAX  35 MG;  70 MG [Suspect]
     Indication: OSTEOPENIA
     Dosage: 35 MG/WKY/PO;   70 MG/WKY/PO
     Route: 048
     Dates: start: 20030101, end: 20040101
  2. TAB FOSAMAX  35 MG;  70 MG [Suspect]
     Indication: OSTEOPOROSIS
     Dosage: 35 MG/WKY/PO;   70 MG/WKY/PO
     Route: 048
     Dates: start: 20030101, end: 20040101
  3. TAB FOSAMAX  35 MG;  70 MG [Suspect]
     Indication: OSTEOPENIA
     Dosage: 35 MG/WKY/PO;   70 MG/WKY/PO
     Route: 048
     Dates: start: 20040101, end: 20060501
  4. TAB FOSAMAX  35 MG;  70 MG [Suspect]
     Indication: OSTEOPOROSIS
     Dosage: 35 MG/WKY/PO;   70 MG/WKY/PO
     Route: 048
     Dates: start: 20040101, end: 20060501
  5. ARTHROTEC [Concomitant]
  6. CYMBALTA [Concomitant]
  7. FLEXERIL [Concomitant]
  8. KLONOPIN [Concomitant]
  9. SYNTHROID [Concomitant]

REACTIONS (3)
  - INFECTION [None]
  - OSTEONECROSIS [None]
  - PARANASAL SINUS HYPERSECRETION [None]
